FAERS Safety Report 13665522 (Version 1)
Quarter: 2017Q2

REPORT INFORMATION
  Report Type: Spontaneous
  Country: US (occurrence: US)
  Receive Date: 20170619
  Receipt Date: 20170619
  Transmission Date: 20170830
  Serious: No
  Sender: FDA-Public Use
  Company Number: US-DRREDDYS-USA/USA/16/0081272

PATIENT
  Sex: Female
  Weight: 81.64 kg

DRUGS (1)
  1. OLANZAPINE TABLETS 2.5 MG, 5 MG, 7.5 MG, 10 MG [Suspect]
     Active Substance: OLANZAPINE
     Indication: BIPOLAR DISORDER
     Route: 048
     Dates: end: 20160706

REACTIONS (5)
  - Lethargy [Recovered/Resolved]
  - Peripheral swelling [Not Recovered/Not Resolved]
  - Bipolar disorder [Recovered/Resolved]
  - Somnolence [Recovered/Resolved]
  - Product quality issue [Unknown]
